FAERS Safety Report 10005984 (Version 1)
Quarter: 2014Q1

REPORT INFORMATION
  Report Type: Spontaneous
  Country: FR (occurrence: FR)
  Receive Date: 20140313
  Receipt Date: 20140313
  Transmission Date: 20141002
  Serious: Yes (Other)
  Sender: FDA-Public Use
  Company Number: FR-TEVA-467287ISR

PATIENT
  Age: 90 Year
  Sex: Female

DRUGS (7)
  1. DOXORUBICINE TEVA [Suspect]
     Indication: B-CELL LYMPHOMA STAGE III
     Dosage: .0476 DOSAGE FORMS DAILY;
     Route: 042
     Dates: start: 20111205, end: 20120228
  2. MABTHERA [Suspect]
     Indication: B-CELL LYMPHOMA STAGE III
     Dosage: .0476 DOSAGE FORMS DAILY;
     Route: 042
     Dates: start: 20111205, end: 20120502
  3. ONCOVIN [Suspect]
     Indication: B-CELL LYMPHOMA STAGE III
     Dosage: .0476 DOSAGE FORMS DAILY;
     Route: 042
     Dates: start: 20111205, end: 20120228
  4. ENDOXAN [Suspect]
     Indication: B-CELL LYMPHOMA
     Dosage: .0476 DOSAGE FORMS DAILY;
     Route: 042
     Dates: start: 20111205, end: 20120228
  5. PREDNISONE [Concomitant]
  6. NEULASTA [Concomitant]
  7. GRANULOCYTE COLONYSTIMULATING FACTOR [Concomitant]

REACTIONS (3)
  - Anaemia [Recovered/Resolved]
  - Major depression [Unknown]
  - Paraesthesia [Recovered/Resolved]
